FAERS Safety Report 8413397-2 (Version None)
Quarter: 2012Q2

REPORT INFORMATION
  Report Type: 
  Country: None (occurrence: None)
  Receive Date: 20120605
  Receipt Date: 20120522
  Transmission Date: 20120825
  Serious: Yes (Other)
  Sender: FDA-Public Use
  Company Number: DE-UCBSA-056294

PATIENT
  Age: 76 Year
  Sex: Female
  Weight: 83 kg

DRUGS (15)
  1. METOPROLOL TARTRATE [Concomitant]
     Indication: HYPERTENSION
     Dosage: AT 07:00AM AND 6:00PM
     Route: 048
     Dates: start: 20100101
  2. ASPIRIN [Concomitant]
     Indication: CORONARY ARTERY DISEASE
     Dosage: AT 11:00AM
     Route: 048
     Dates: start: 20100101
  3. DIPYRONE TAB [Concomitant]
     Dosage: AT 07:00AM, 11:00A,, 03:00PM, 06:00PM
  4. OMEPRAZOLE [Concomitant]
     Indication: GASTRIC ULCER PERFORATION
     Route: 048
     Dates: start: 20100101
  5. MADOPAR LT [Concomitant]
     Dosage: AT 06:00 AM
  6. PANTOPRAZOLE [Concomitant]
     Dosage: AT 07:00AM
  7. ERGOCALCIFEROL [Concomitant]
  8. TORSEMIDE [Concomitant]
     Indication: POLYURIA
     Dosage: AT 06:00AM
     Route: 048
     Dates: start: 20100101
  9. DIASPORAL DINKT [Concomitant]
     Dosage: 300 MG
  10. NEUPRO [Suspect]
     Indication: PARKINSON'S DISEASE
     Route: 062
     Dates: start: 20120410, end: 20120425
  11. NEUPRO [Suspect]
     Dosage: ONCE DAILY AT 06:00AM
     Route: 062
     Dates: start: 20120310, end: 20120101
  12. MADOPAR [Concomitant]
     Dosage: 3X 125 (UNIT UNSPECIFIED), AT 07:00AM, 11:00AM, 06:00PM
  13. DIOVAN [Concomitant]
     Indication: HYPERTENSION
     Dosage: 160 MG AT 07:00AM AND 80 MG AT 06:00PM
     Route: 048
     Dates: start: 20100101
  14. ESTRADIOL [Concomitant]
     Dosage: ON WEDNESDAY AND SATURDAY
  15. OMEGA 3 KPS [Concomitant]

REACTIONS (8)
  - HYPERTRANSAMINASAEMIA [None]
  - PRURITUS [None]
  - ALOPECIA [None]
  - ERYTHEMA [None]
  - GAMMA-GLUTAMYLTRANSFERASE INCREASED [None]
  - URTICARIA [None]
  - SKIN BURNING SENSATION [None]
  - APPLICATION SITE PUSTULES [None]
